FAERS Safety Report 23017974 (Version 1)
Quarter: 2023Q4

REPORT INFORMATION
  Report Type: Other
  Country: BE (occurrence: None)
  Receive Date: 20231003
  Receipt Date: 20231003
  Transmission Date: 20240110
  Serious: Yes (Other)
  Sender: FDA-Public Use
  Company Number: BE-ROCHE-3428126

PATIENT
  Age: 54 Year
  Sex: Male

DRUGS (1)
  1. BEVACIZUMAB [Suspect]
     Active Substance: BEVACIZUMAB
     Indication: Hereditary haemorrhagic telangiectasia
     Dosage: 5 MILLIGRAM, Q2WK (SIX CYCLES)
     Route: 065

REACTIONS (3)
  - Hypertension [Unknown]
  - Off label use [Unknown]
  - Drug effective for unapproved indication [Unknown]
